FAERS Safety Report 23420292 (Version 1)
Quarter: 2024Q1

REPORT INFORMATION
  Report Type: Spontaneous
  Country: US (occurrence: US)
  Receive Date: 20240119
  Receipt Date: 20240119
  Transmission Date: 20240410
  Serious: Yes (Other)
  Sender: FDA-Public Use
  Company Number: US-AUROBINDO-AUR-APL-2023-079275

PATIENT
  Age: 56 Year
  Sex: Male

DRUGS (2)
  1. ARIPIPRAZOLE [Suspect]
     Active Substance: ARIPIPRAZOLE
     Indication: Post-traumatic stress disorder
     Dosage: 5 MILLIGRAM, ONCE A DAY
     Route: 065
  2. ARIPIPRAZOLE [Suspect]
     Active Substance: ARIPIPRAZOLE
     Indication: Psychomotor hyperactivity
     Dosage: 10 MILLIGRAM, ONCE A DAY
     Route: 065

REACTIONS (8)
  - Hallucination, visual [Recovered/Resolved]
  - Hypothermia [Recovered/Resolved]
  - Hypothyroidism [Recovered/Resolved]
  - Condition aggravated [Recovered/Resolved]
  - Confusional state [Recovered/Resolved]
  - Judgement impaired [Recovered/Resolved]
  - Dysarthria [Recovered/Resolved]
  - Hyporeflexia [Recovered/Resolved]
